FAERS Safety Report 10184754 (Version 2)
Quarter: 2014Q3

REPORT INFORMATION
  Report Type: Spontaneous
  Country: None (occurrence: None)
  Receive Date: 20140519
  Receipt Date: 20140729
  Transmission Date: 20150326
  Serious: Yes (Hospitalization)
  Sender: FDA-Public Use
  Company Number: 2014050031

PATIENT
  Age: 40 Year
  Sex: Male

DRUGS (5)
  1. DELORAZEPAM [Suspect]
     Active Substance: DELORAZEPAM
     Dosage: 1 IN 1 TOTAL
     Route: 048
     Dates: start: 20140426, end: 20140426
  2. GABAPENTIN (GABAPENTIN) [Concomitant]
     Active Substance: GABAPENTIN
  3. DAPAROX [Suspect]
     Active Substance: PAROXETINE HYDROCHLORIDE
     Route: 048
     Dates: start: 20140426, end: 20140426
  4. INDOXEN [Suspect]
     Active Substance: INDOMETHACIN
     Route: 048
     Dates: start: 20140426, end: 20140426
  5. ZOLPIDEM [Suspect]
     Active Substance: ZOLPIDEM\ZOLPIDEM TARTRATE
     Route: 048
     Dates: start: 20140426, end: 20140426

REACTIONS (5)
  - Bradykinesia [None]
  - Alcohol use [None]
  - Intentional overdose [None]
  - Intentional self-injury [None]
  - Drug abuse [None]

NARRATIVE: CASE EVENT DATE: 20140427
